FAERS Safety Report 19998822 (Version 2)
Quarter: 2021Q4

REPORT INFORMATION
  Report Type: Spontaneous
  Country: US (occurrence: US)
  Receive Date: 20211026
  Receipt Date: 20211102
  Transmission Date: 20220304
  Serious: Yes (Death, Life-Threatening, Other)
  Sender: FDA-Public Use
  Company Number: US-PFIZER INC-202101380566

PATIENT
  Age: 24 Year
  Sex: Male

DRUGS (3)
  1. PROPOFOL [Suspect]
     Active Substance: PROPOFOL
     Indication: Sedation
     Dosage: UNK (RATE BETWEEN 50-60 MCG/KG/MIN)
  2. DEXAMETHASONE [Concomitant]
     Active Substance: DEXAMETHASONE
     Indication: Acute respiratory distress syndrome
     Dosage: UNK
  3. REMDESIVIR [Concomitant]
     Active Substance: REMDESIVIR
     Indication: Acute respiratory distress syndrome
     Dosage: UNK

REACTIONS (5)
  - Cardiac arrest [Fatal]
  - Propofol infusion syndrome [Fatal]
  - Hyperleukocytosis [Fatal]
  - Bradycardia [Fatal]
  - Metabolic acidosis [Fatal]
